FAERS Safety Report 5288631-0 (Version None)
Quarter: 2007Q2

REPORT INFORMATION
  Report Type: 
  Country: None (occurrence: None)
  Receive Date: 20070405
  Receipt Date: 20070330
  Transmission Date: 20071010
  Serious: Yes (Other)
  Sender: FDA-Public Use
  Company Number: 2006UW25343

PATIENT
  Age: 31 Year
  Sex: Female
  Weight: 98.6 kg

DRUGS (2)
  1. SEROQUEL [Suspect]
     Indication: DEPRESSION
     Route: 048
     Dates: start: 20040101, end: 20050101
  2. ABILIFY [Concomitant]
     Dates: start: 20041001, end: 20050501

REACTIONS (3)
  - ANXIETY [None]
  - DIABETES MELLITUS [None]
  - SUICIDAL BEHAVIOUR [None]
